FAERS Safety Report 5722375-3 (Version None)
Quarter: 2008Q2

REPORT INFORMATION
  Report Type: 
  Country: None (occurrence: None)
  Receive Date: 20080429
  Receipt Date: 20071024
  Transmission Date: 20081010
  Serious: No
  Sender: FDA-Public Use
  Company Number: CA-ASTRAZENECA-2007UW24738

PATIENT
  Age: 78 Year
  Sex: Female

DRUGS (6)
  1. NEXIUM [Suspect]
     Indication: DYSPEPSIA
     Route: 048
  2. NEXIUM [Suspect]
     Indication: OESOPHAGEAL ULCER
     Route: 048
  3. NEXIUM [Suspect]
     Route: 048
  4. NEXIUM [Suspect]
     Route: 048
  5. NEXIUM [Suspect]
     Route: 048
     Dates: start: 20071023
  6. NEXIUM [Suspect]
     Route: 048
     Dates: start: 20071023

REACTIONS (2)
  - FOREIGN BODY TRAUMA [None]
  - THROAT IRRITATION [None]
